FAERS Safety Report 7759494-6 (Version None)
Quarter: 2011Q3

REPORT INFORMATION
  Report Type: 
  Country: None (occurrence: None)
  Receive Date: 20110919
  Receipt Date: 20110919
  Transmission Date: 20111222
  Serious: Yes (Life-Threatening, Hospitalization, Disabling)
  Sender: FDA-Public Use
  Company Number: None

PATIENT
  Age: 22 Year
  Sex: Female
  Weight: 65.77 kg

DRUGS (1)
  1. ESKALITH [Suspect]
     Indication: BIPOLAR I DISORDER
     Dosage: 300MG
     Dates: start: 19851124, end: 20061001

REACTIONS (5)
  - RENAL FAILURE CHRONIC [None]
  - MALAISE [None]
  - IMPAIRED WORK ABILITY [None]
  - ECONOMIC PROBLEM [None]
  - DIALYSIS [None]
